FAERS Safety Report 11867379 (Version 8)
Quarter: 2021Q4

REPORT INFORMATION
  Report Type: Report from Study
  Country: DE (occurrence: DE)
  Receive Date: 20151224
  Receipt Date: 20211210
  Transmission Date: 20220303
  Serious: Yes (Death, Life-Threatening, Other)
  Sender: FDA-Public Use
  Company Number: DE-002147023-PHHY2015DE163177

PATIENT

DRUGS (2)
  1. RUXOLITINIB [Suspect]
     Active Substance: RUXOLITINIB
     Indication: Primary myelofibrosis
     Dosage: UNK
     Route: 048
     Dates: start: 20151120
  2. RUXOLITINIB [Suspect]
     Active Substance: RUXOLITINIB
     Dosage: 2 DF, QD
     Route: 048
     Dates: start: 20151204, end: 20151207

REACTIONS (8)
  - Acute pulmonary oedema [Fatal]
  - Blood glucose increased [Not Recovered/Not Resolved]
  - Brain injury [Fatal]
  - Pneumonia [Fatal]
  - Tracheobronchitis [Fatal]
  - Acute kidney injury [Fatal]
  - Cardiogenic shock [Fatal]
  - Thrombocytopenia [Recovering/Resolving]

NARRATIVE: CASE EVENT DATE: 20151204
